FAERS Safety Report 20905454 (Version 3)
Quarter: 2022Q3

REPORT INFORMATION
  Report Type: Other
  Country: GB (occurrence: None)
  Receive Date: 20220602
  Receipt Date: 20220811
  Transmission Date: 20221026
  Serious: Yes (Hospitalization)
  Sender: FDA-Public Use
  Company Number: GB-ROCHE-3106437

PATIENT
  Age: 25 Year
  Sex: Female

DRUGS (1)
  1. EVRYSDI [Suspect]
     Active Substance: RISDIPLAM
     Indication: Product used for unknown indication
     Dosage: ONE PER WEEK
     Route: 065
     Dates: start: 20220413

REACTIONS (2)
  - Ovarian cyst [Unknown]
  - Renal mass [Unknown]

NARRATIVE: CASE EVENT DATE: 20220413
